FAERS Safety Report 7589386-7 (Version None)
Quarter: 2011Q3

REPORT INFORMATION
  Report Type: 
  Country: None (occurrence: None)
  Receive Date: 20110705
  Receipt Date: 20110622
  Transmission Date: 20111222
  Serious: Yes (Death, Life-Threatening)
  Sender: FDA-Public Use
  Company Number: JP-ROCHE-714969

PATIENT
  Sex: Female
  Weight: 46 kg

DRUGS (9)
  1. SELBEX [Concomitant]
     Route: 048
     Dates: start: 20050201
  2. PREDNISOLONE [Concomitant]
     Route: 048
     Dates: start: 20050201
  3. ACETAMINOPHEN [Concomitant]
     Dosage: FORM: PERORAL AGENT.
     Route: 048
     Dates: start: 20050201
  4. RHEUMATREX [Suspect]
     Indication: RHEUMATOID ARTHRITIS
     Route: 048
     Dates: start: 20050201
  5. BONALON [Concomitant]
     Route: 048
     Dates: start: 20050201
  6. FOLIC ACID [Concomitant]
     Route: 048
     Dates: start: 20050201
  7. ACTEMRA [Suspect]
     Indication: RHEUMATOID ARTHRITIS
     Route: 041
     Dates: start: 20100428, end: 20100428
  8. ACTEMRA [Suspect]
     Route: 041
     Dates: start: 20100526, end: 20100526
  9. PRANLUKAST [Concomitant]
     Route: 048
     Dates: start: 20050201

REACTIONS (4)
  - PNEUMONIA [None]
  - SEPSIS [None]
  - DISSEMINATED INTRAVASCULAR COAGULATION [None]
  - WHITE BLOOD CELL COUNT DECREASED [None]
